FAERS Safety Report 20078970 (Version 1)
Quarter: 2021Q4

REPORT INFORMATION
  Report Type: Spontaneous
  Country: US (occurrence: US)
  Receive Date: 20211117
  Receipt Date: 20211117
  Transmission Date: 20220304
  Serious: No
  Sender: FDA-Public Use
  Company Number: US-TARO-2021TAR00828

PATIENT

DRUGS (2)
  1. TRETINOIN [Suspect]
     Active Substance: TRETINOIN
     Indication: Acne
     Dosage: OD, ONCE DAILY TOPICALLY TO FACE
     Route: 061
     Dates: start: 202106
  2. TRETINOIN [Suspect]
     Active Substance: TRETINOIN
     Indication: Skin disorder

REACTIONS (2)
  - Dry eye [Not Recovered/Not Resolved]
  - Eye swelling [Not Recovered/Not Resolved]

NARRATIVE: CASE EVENT DATE: 20210701
